FAERS Safety Report 4591243-5 (Version None)
Quarter: 2005Q1

REPORT INFORMATION
  Report Type: 
  Country: None (occurrence: None)
  Receive Date: 20050225
  Receipt Date: 20050216
  Transmission Date: 20050727
  Serious: Yes (Life-Threatening, Hospitalization, Disabling)
  Sender: FDA-Public Use
  Company Number: US-MERCK-0502USA02221

PATIENT
  Age: 66 Year
  Sex: Male

DRUGS (3)
  1. VIOXX [Suspect]
     Indication: ARTHRITIS
     Route: 048
     Dates: start: 20010101, end: 20040930
  2. ZOCOR [Concomitant]
     Route: 048
  3. TOPROL-XL [Concomitant]
     Route: 065

REACTIONS (2)
  - CARDIAC DISORDER [None]
  - CORONARY ARTERY SURGERY [None]
